FAERS Safety Report 4728445-0 (Version None)
Quarter: 2005Q3

REPORT INFORMATION
  Report Type: 
  Country: None (occurrence: None)
  Receive Date: 20050729
  Receipt Date: 20050427
  Transmission Date: 20060218
  Serious: No
  Sender: FDA-Public Use
  Company Number: US-GLAXOSMITHKLINE-A0556036A

PATIENT
  Age: 2 Month
  Sex: Female

DRUGS (2)
  1. ZANTAC [Suspect]
     Dosage: 1.2ML TWICE PER DAY
     Route: 048
     Dates: start: 20050101
  2. REGLAN [Concomitant]

REACTIONS (1)
  - DYSPHAGIA [None]
